FAERS Safety Report 14236579 (Version 1)
Quarter: 2017Q4

REPORT INFORMATION
  Report Type: Report from Study
  Country: US (occurrence: US)
  Receive Date: 20171129
  Receipt Date: 20171129
  Transmission Date: 20180321
  Serious: Yes (Hospitalization, Other)
  Sender: FDA-Public Use
  Company Number: US-UCBSA-2017047353

PATIENT
  Sex: Female

DRUGS (5)
  1. LACOSAMIDE. [Suspect]
     Active Substance: LACOSAMIDE
     Indication: EPILEPSY
     Dosage: UNK
  2. LAMICTAL [Concomitant]
     Active Substance: LAMOTRIGINE
     Indication: EPILEPSY
  3. ONFI [Concomitant]
     Active Substance: CLOBAZAM
     Indication: EPILEPSY
  4. DILANTIN [Concomitant]
     Active Substance: PHENYTOIN
     Indication: EPILEPSY
  5. LYRICA [Concomitant]
     Active Substance: PREGABALIN
     Indication: EPILEPSY

REACTIONS (3)
  - Generalised tonic-clonic seizure [Unknown]
  - Seizure [Unknown]
  - Partial seizures [Unknown]
